FAERS Safety Report 8144503-5 (Version None)
Quarter: 2012Q1

REPORT INFORMATION
  Report Type: 
  Country: None (occurrence: None)
  Receive Date: 20120217
  Receipt Date: 20120207
  Transmission Date: 20120608
  Serious: Yes (Hospitalization)
  Sender: FDA-Public Use
  Company Number: US-JNJFOC-20120205317

PATIENT
  Sex: Female
  Weight: 67.3 kg

DRUGS (5)
  1. MULTI-VITAMINS [Concomitant]
  2. MESALAMINE [Concomitant]
     Route: 048
  3. REMICADE [Suspect]
     Indication: IRRITABLE BOWEL SYNDROME
     Route: 042
  4. HUMIRA [Concomitant]
  5. NEXIUM [Concomitant]

REACTIONS (1)
  - COLITIS ULCERATIVE [None]
